FAERS Safety Report 4611787-7 (Version None)
Quarter: 2005Q2

REPORT INFORMATION
  Report Type: 
  Country: None (occurrence: None)
  Receive Date: 20050308
  Receipt Date: 20050201
  Transmission Date: 20051028
  Serious: Yes (Other)
  Sender: FDA-Public Use
  Company Number: 2004UW24766

PATIENT
  Age: 72 Year
  Sex: Male
  Weight: 79.3795 kg

DRUGS (8)
  1. CRESTOR [Suspect]
     Dosage: 10 MG PO
     Route: 048
     Dates: start: 20040101
  2. PLAVIX [Concomitant]
  3. ALLOPURINOL [Concomitant]
  4. TOPROL-XL [Concomitant]
  5. DILTIAZEM [Concomitant]
  6. LEVOXYL [Concomitant]
  7. LISINOPRIL [Concomitant]
  8. LOPRESSOR [Concomitant]

REACTIONS (3)
  - FACE OEDEMA [None]
  - OEDEMA [None]
  - WEIGHT INCREASED [None]
